FAERS Safety Report 10261587 (Version 1)
Quarter: 2014Q2

REPORT INFORMATION
  Report Type: Spontaneous
  Country: GB (occurrence: GB)
  Receive Date: 20140626
  Receipt Date: 20140626
  Transmission Date: 20141212
  Serious: Yes (Hospitalization)
  Sender: FDA-Public Use
  Company Number: GB-ASTRAZENECA-2014SE45736

PATIENT
  Age: 23685 Day
  Sex: Female

DRUGS (1)
  1. NEXIUM [Suspect]
     Indication: HIATUS HERNIA
     Route: 048

REACTIONS (23)
  - Musculoskeletal chest pain [Unknown]
  - Renal colic [Unknown]
  - Herpes zoster [Unknown]
  - Blood urine present [Unknown]
  - Nephrolithiasis [Unknown]
  - Kidney infection [Unknown]
  - Pain [Unknown]
  - Vomiting [Unknown]
  - Constipation [Unknown]
  - Abdominal pain upper [Unknown]
  - Intervertebral disc degeneration [Unknown]
  - Loss of consciousness [Unknown]
  - Amnesia [Unknown]
  - Neck pain [Unknown]
  - Back disorder [Unknown]
  - Hallucination [Unknown]
  - Pain of skin [Unknown]
  - Adverse event [Unknown]
  - Scar [Unknown]
  - Vertigo [Unknown]
  - Contusion [Unknown]
  - Gastric pH decreased [Unknown]
  - Concussion [Unknown]
